FAERS Safety Report 8437786-5 (Version None)
Quarter: 2012Q2

REPORT INFORMATION
  Report Type: 
  Country: None (occurrence: None)
  Receive Date: 20120614
  Receipt Date: 20120511
  Transmission Date: 20120825
  Serious: Yes (Hospitalization)
  Sender: FDA-Public Use
  Company Number: US-AMGEN-USASP2012030059

PATIENT
  Age: 68 Year
  Sex: Male
  Weight: 109.6 kg

DRUGS (6)
  1. XGEVA [Suspect]
     Indication: PROSTATE CANCER METASTATIC
     Dosage: UNK
     Dates: start: 20111107, end: 20111205
  2. ORTERONEL [Suspect]
     Indication: PROSTATE CANCER METASTATIC
     Dosage: UNK
     Dates: start: 20111107, end: 20111229
  3. PREDNISONE TAB [Suspect]
     Indication: PROSTATE CANCER METASTATIC
     Dosage: 5 MG, BID
     Route: 048
     Dates: start: 20111107, end: 20120115
  4. TAXOTERE [Suspect]
     Indication: PROSTATE CANCER METASTATIC
     Dosage: UNK
     Dates: start: 20120119
  5. VITAMIN D [Concomitant]
     Dosage: UNK
     Dates: start: 20120103
  6. CALCIUM [Concomitant]
     Dosage: UNK
     Dates: start: 20120103

REACTIONS (2)
  - FATIGUE [None]
  - HYPOCALCAEMIA [None]
